FAERS Safety Report 7354920-9 (Version None)
Quarter: 2011Q1

REPORT INFORMATION
  Report Type: 
  Country: None (occurrence: None)
  Receive Date: 20110316
  Receipt Date: 20110216
  Transmission Date: 20110831
  Serious: No
  Sender: FDA-Public Use
  Company Number: US-B.I. PHARMACEUTICALS,INC./RIDGEFIELD-2011-BP-05876BP

PATIENT
  Sex: Female

DRUGS (1)
  1. TWYNSTA [Suspect]

REACTIONS (3)
  - PERIPHERAL COLDNESS [None]
  - HYPERHIDROSIS [None]
  - HOT FLUSH [None]
